FAERS Safety Report 24571140 (Version 1)
Quarter: 2024Q4

REPORT INFORMATION
  Report Type: Spontaneous
  Country: ES (occurrence: ES)
  Receive Date: 20241101
  Receipt Date: 20241101
  Transmission Date: 20250115
  Serious: Yes (Other)
  Sender: BAUSCH AND LOMB
  Company Number: ES-BAUSCH-BL-2024-016181

PATIENT
  Age: 78 Year
  Sex: Female

DRUGS (8)
  1. IMIQUIMOD [Suspect]
     Active Substance: IMIQUIMOD
     Indication: Skin cancer
     Dosage: (QD, 1.0 APPLICATION EVERY/24 H - SATURDAY AND SUNDAY)
     Route: 061
     Dates: start: 20240927
  2. DIAMICRON [Concomitant]
     Indication: Product used for unknown indication
     Dosage: 60 TABLETS (GLICLAZIDE)
     Dates: start: 20160714
  3. LANSOPRAZOL CINFA [Concomitant]
     Indication: Product used for unknown indication
     Dosage: GENERIC PHARMACEUTICAL EQUIVALENT, 56 CAPSULES (LANSOPRAZOLE),
     Dates: start: 20240417
  4. TRUSOPT [Concomitant]
     Active Substance: DORZOLAMIDE HYDROCHLORIDE
     Indication: Product used for unknown indication
     Dosage: 1 VIAL OF 5 MILLILITRE (DORZOLAMIDE HYDROCHLORIDE),
     Dates: start: 20230113
  5. JANUVIA [Concomitant]
     Active Substance: SITAGLIPTIN PHOSPHATE
     Indication: Product used for unknown indication
     Dosage: 28 TABLETS (SITAGLIPTIN PHOSPHATE MONOHYDRATE)
     Dates: start: 20210928
  6. PARACETAMOL TECNIGEN [Concomitant]
     Indication: Product used for unknown indication
     Dosage: GENERIC PHARMACEUTICAL EQUIVALENT, 40 TABLETS (PARACETAMOL)
     Dates: start: 20141014
  7. SIMVASTATINA CINFA [Concomitant]
     Indication: Product used for unknown indication
     Dosage: GENERIC PHARMACEUTICAL EQUIVALENT, 28 TABLETS (SIMVASTATIN)
     Dates: start: 20160713
  8. ADVENTAN [Concomitant]
     Indication: Product used for unknown indication
     Dosage: 1 TUBE OF 60 G (METHYLPREDNISOLONE ACEPONATE).
     Dates: start: 20240718

REACTIONS (3)
  - Pharyngitis [Unknown]
  - Dyspnoea [Unknown]
  - Myalgia [Unknown]

NARRATIVE: CASE EVENT DATE: 20241007
